FAERS Safety Report 4931167-4 (Version None)
Quarter: 2006Q1

REPORT INFORMATION
  Report Type: 
  Country: None (occurrence: None)
  Receive Date: 20060302
  Receipt Date: 20030901
  Transmission Date: 20060701
  Serious: Yes (Hospitalization)
  Sender: FDA-Public Use
  Company Number: AU-MERCK-0309AUS00008

PATIENT
  Sex: Male

DRUGS (8)
  1. VIOXX [Suspect]
     Indication: ARTHRALGIA
     Route: 048
     Dates: start: 20030101, end: 20030801
  2. CARBAMAZEPINE [Concomitant]
     Route: 065
  3. CLONAZEPAM [Concomitant]
     Route: 065
  4. METOPROLOL TARTRATE [Concomitant]
     Route: 065
  5. TELMISARTAN [Concomitant]
     Route: 065
  6. ATORVASTATIN CALCIUM [Concomitant]
     Route: 065
  7. CLOPIDOGREL BISULFATE [Concomitant]
     Route: 065
  8. ISOSORBIDE MONONITRATE [Suspect]
     Route: 065
     Dates: end: 20030801

REACTIONS (1)
  - LOSS OF CONSCIOUSNESS [None]
